FAERS Safety Report 21849429 (Version 8)
Quarter: 2023Q4

REPORT INFORMATION
  Report Type: Spontaneous
  Country: US (occurrence: US)
  Receive Date: 20230111
  Receipt Date: 20231023
  Transmission Date: 20240109
  Serious: No
  Sender: FDA-Public Use
  Company Number: US-PFIZER INC-PV202300005024

PATIENT
  Age: 57 Year
  Sex: Male

DRUGS (4)
  1. CAMPTOSAR [Suspect]
     Active Substance: IRINOTECAN HYDROCHLORIDE
     Dosage: 261 MG (261 MG IV EVERY 2 WEEKS)
     Route: 042
     Dates: start: 20211213
  2. CAMPTOSAR [Suspect]
     Active Substance: IRINOTECAN HYDROCHLORIDE
     Dosage: 261 MG (INSTRUCTIONS: 261 MG 4 EVERY 2 WEEKS)
     Route: 042
  3. NIVESTYM [Suspect]
     Active Substance: FILGRASTIM-AAFI
     Dosage: 480 UG (480MCG SQ FOR 5 DAYS FOLLOWING CHEMOTHERAPY (DISPENSE 5 SYRINGS)
     Route: 058
  4. ZIRABEV [Suspect]
     Active Substance: BEVACIZUMAB-BVZR
     Dosage: 766 MG (766 MG IV EVERY 2 WEEKS)
     Route: 042

REACTIONS (2)
  - Off label use [Unknown]
  - General physical health deterioration [Unknown]
